FAERS Safety Report 14232722 (Version 1)
Quarter: 2017Q4

REPORT INFORMATION
  Report Type: Spontaneous
  Country: MX (occurrence: MX)
  Receive Date: 20171128
  Receipt Date: 20171128
  Transmission Date: 20180321
  Serious: Yes (Death)
  Sender: FDA-Public Use
  Company Number: MX-SA-2017SA236577

PATIENT
  Age: 59 Year
  Sex: Female
  Weight: 62.2 kg

DRUGS (3)
  1. LETROZOLE. [Concomitant]
     Active Substance: LETROZOLE
     Route: 065
     Dates: start: 20161123
  2. GLIBENCLAMIDE [Suspect]
     Active Substance: GLYBURIDE
     Route: 048
     Dates: start: 20160101
  3. PALBOCICLIB [Suspect]
     Active Substance: PALBOCICLIB
     Route: 048
     Dates: start: 20160818, end: 20161122

REACTIONS (1)
  - Hypoglycaemia [Fatal]
